FAERS Safety Report 7717037-7 (Version None)
Quarter: 2011Q3

REPORT INFORMATION
  Report Type: 
  Country: None (occurrence: None)
  Receive Date: 20110829
  Receipt Date: 20110823
  Transmission Date: 20111222
  Serious: Yes (Hospitalization)
  Sender: FDA-Public Use
  Company Number: DE-B.I. PHARMACEUTICALS,INC./RIDGEFIELD-2011-DE-04718DE

PATIENT
  Sex: Female
  Weight: 75 kg

DRUGS (4)
  1. PANTOZOL 20 [Concomitant]
     Indication: PROPHYLAXIS
     Dosage: 20 MG
     Dates: start: 20110628, end: 20110701
  2. DICLO 50 [Concomitant]
     Indication: ANALGESIC THERAPY
     Dosage: 100 MG
     Dates: start: 20110628, end: 20110701
  3. PRADAXA [Suspect]
     Indication: HIP ARTHROPLASTY
     Dosage: 220 MG
     Dates: start: 20110628, end: 20110707
  4. NOVALGIN 500 [Concomitant]
     Indication: ANALGESIC THERAPY
     Dosage: 2500 MG
     Dates: start: 20110628, end: 20110701

REACTIONS (2)
  - SEROMA [None]
  - WOUND SECRETION [None]
